FAERS Safety Report 22207134 (Version 1)
Quarter: 2023Q2

REPORT INFORMATION
  Report Type: Spontaneous
  Country: ZA (occurrence: ZA)
  Receive Date: 20230413
  Receipt Date: 20230413
  Transmission Date: 20230722
  Serious: Yes (Hospitalization)
  Sender: FDA-Public Use
  Company Number: ZA-002147023-NVSC2023ZA085160

PATIENT
  Age: 57 Year
  Sex: Female

DRUGS (4)
  1. TELMISARTAN [Suspect]
     Active Substance: TELMISARTAN
     Indication: Hypertension
     Dosage: 80 MG, QD
     Route: 048
  2. CARVEDILOL [Concomitant]
     Active Substance: CARVEDILOL
     Indication: Product used for unknown indication
     Dosage: 12.5 G, BID
     Route: 065
  3. LASIX [Concomitant]
     Active Substance: FUROSEMIDE
     Indication: Product used for unknown indication
     Dosage: 40 G, BID
     Route: 065
  4. SPIRACTIN [Concomitant]
     Indication: Product used for unknown indication
     Dosage: 2.5 G, QD
     Route: 065

REACTIONS (6)
  - Orthopnoea [Unknown]
  - Joint swelling [Unknown]
  - Pulmonary oedema [Unknown]
  - Fatigue [Unknown]
  - Dyspnoea [Unknown]
  - Left ventricular dysfunction [Unknown]
